FAERS Safety Report 23829722 (Version 3)
Quarter: 2024Q2

REPORT INFORMATION
  Report Type: Spontaneous
  Country: US (occurrence: US)
  Receive Date: 20240508
  Receipt Date: 20240528
  Transmission Date: 20240716
  Serious: Yes (Other)
  Sender: FDA-Public Use
  Company Number: US-SANDOZ-SDZ2024US045287

PATIENT
  Sex: Female

DRUGS (1)
  1. RECLAST [Suspect]
     Active Substance: ZOLEDRONIC ACID
     Indication: Product used for unknown indication
     Dosage: UNK
     Route: 065
     Dates: start: 20221227

REACTIONS (5)
  - Near death experience [Unknown]
  - Infusion related reaction [Unknown]
  - Oropharyngeal pain [Not Recovered/Not Resolved]
  - Hepatic enzyme abnormal [Recovered/Resolved]
  - Drug intolerance [Unknown]
